FAERS Safety Report 8202686-2 (Version None)
Quarter: 2012Q1

REPORT INFORMATION
  Report Type: 
  Country: None (occurrence: None)
  Receive Date: 20120312
  Receipt Date: 20120308
  Transmission Date: 20120608
  Serious: Yes (Death, Other)
  Sender: FDA-Public Use
  Company Number: PHHY2012JP020200

PATIENT
  Age: 65 Year
  Sex: Male

DRUGS (5)
  1. IRINOTECAN HCL [Suspect]
     Dosage: 48 MG/M2,
  2. RADIOTHERAPY [Concomitant]
  3. CISPLATIN [Suspect]
     Indication: SMALL CELL CARCINOMA
     Dosage: 30 MG/M2,
  4. IRINOTECAN HCL [Suspect]
     Indication: SMALL CELL CARCINOMA
     Dosage: 60 MG/M2,
  5. CISPLATIN [Suspect]
     Dosage: 24 MG/M2,

REACTIONS (3)
  - METASTASES TO LIVER [None]
  - HEPATIC FAILURE [None]
  - THROMBOCYTOPENIA [None]
